FAERS Safety Report 5156335-0 (Version None)
Quarter: 2006Q4

REPORT INFORMATION
  Report Type: 
  Country: None (occurrence: None)
  Receive Date: 20061122
  Receipt Date: 20061120
  Transmission Date: 20070319
  Serious: Yes (Other)
  Sender: FDA-Public Use
  Company Number: PT-GLAXOSMITHKLINE-B0447201A

PATIENT
  Sex: Female

DRUGS (1)
  1. ZENTEL [Suspect]
     Indication: HELMINTHIC INFECTION
     Dosage: 400MGL PER DAY
     Route: 048
     Dates: start: 20061005

REACTIONS (4)
  - ASTHENIA [None]
  - FEELING HOT AND COLD [None]
  - PALLOR [None]
  - STOMACH DISCOMFORT [None]
